FAERS Safety Report 8496046-7 (Version None)
Quarter: 2012Q3

REPORT INFORMATION
  Report Type: 
  Country: None (occurrence: None)
  Receive Date: 20120709
  Receipt Date: 20120628
  Transmission Date: 20120928
  Serious: Yes (Hospitalization)
  Sender: FDA-Public Use
  Company Number: US-ASTRAZENECA-2012SE44544

PATIENT
  Age: 64 Year
  Sex: Male

DRUGS (2)
  1. PREVACID [Concomitant]
  2. NEXIUM [Suspect]
     Route: 048

REACTIONS (4)
  - DRUG DOSE OMISSION [None]
  - DISCOMFORT [None]
  - PAIN [None]
  - REFLUX LARYNGITIS [None]
